FAERS Safety Report 6909733-6 (Version None)
Quarter: 2010Q3

REPORT INFORMATION
  Report Type: 
  Country: None (occurrence: None)
  Receive Date: 20100806
  Receipt Date: 20100802
  Transmission Date: 20110219
  Serious: Yes (Other)
  Sender: FDA-Public Use
  Company Number: US-ASTRAZENECA-2007UW19195

PATIENT
  Age: 41 Year
  Sex: Male
  Weight: 149.7 kg

DRUGS (11)
  1. SEROQUEL [Suspect]
     Indication: DEPRESSION
     Dosage: 25-100 MG
     Route: 048
     Dates: start: 19900101, end: 20060223
  2. SEROQUEL [Suspect]
     Indication: SLEEP DISORDER
     Dosage: 25-100 MG
     Route: 048
     Dates: start: 19900101, end: 20060223
  3. SEROQUEL [Suspect]
     Dosage: 25- 100 MG DAILY
     Route: 048
     Dates: start: 20030207
  4. SEROQUEL [Suspect]
     Dosage: 25- 100 MG DAILY
     Route: 048
     Dates: start: 20030207
  5. ALPRAZOLAM [Concomitant]
     Dosage: TAKE 2 TABLETS 3 T
     Dates: start: 20020109
  6. PREVACID [Concomitant]
     Dosage: TAKE 1 CAPSULE EVE
     Dates: start: 20030122
  7. HYDROCHLOROTHIAZIDE [Concomitant]
     Dosage: STRENGTH 25. TAKE 1 TABLET EVER
     Dates: start: 20030227
  8. THEOPHYLLINE [Concomitant]
     Dosage: 300-600 MG DAILY
     Route: 048
     Dates: start: 20030307
  9. LEXAPRO [Concomitant]
     Dosage: TAKE 1 TABLET EVER
     Dates: start: 20030501
  10. LIPITOR [Concomitant]
     Indication: BLOOD CHOLESTEROL INCREASED
  11. LIPITOR [Concomitant]
     Indication: HYPERLIPIDAEMIA

REACTIONS (4)
  - GLAUCOMA [None]
  - HYPERGLYCAEMIA [None]
  - NEUROPATHY PERIPHERAL [None]
  - TYPE 2 DIABETES MELLITUS [None]
